FAERS Safety Report 18289938 (Version 2)
Quarter: 2020Q4

REPORT INFORMATION
  Report Type: Spontaneous
  Country: CH (occurrence: CH)
  Receive Date: 20200921
  Receipt Date: 20201124
  Transmission Date: 20210113
  Serious: Yes (Hospitalization, Other)
  Sender: FDA-Public Use
  Company Number: CH-BRISTOL-MYERS SQUIBB COMPANY-BMS-2020-074756

PATIENT

DRUGS (2)
  1. YERVOY [Suspect]
     Active Substance: IPILIMUMAB
     Indication: MESOTHELIOMA
     Dosage: 200 MILLIGRAM, Q2WK
     Route: 065
     Dates: start: 20181220, end: 20190425
  2. OPDIVO [Suspect]
     Active Substance: NIVOLUMAB
     Indication: MESOTHELIOMA
     Dosage: 200 MILLIGRAM, Q2WK
     Route: 065
     Dates: start: 20181220, end: 20190425

REACTIONS (3)
  - Malignant neoplasm progression [Unknown]
  - Intentional product use issue [Unknown]
  - Ileus [Unknown]

NARRATIVE: CASE EVENT DATE: 20190427
